FAERS Safety Report 6444003-4 (Version None)
Quarter: 2009Q4

REPORT INFORMATION
  Report Type: 
  Country: None (occurrence: None)
  Receive Date: 20091116
  Receipt Date: 20091116
  Transmission Date: 20100525
  Serious: Yes (Hospitalization)
  Sender: FDA-Public Use
  Company Number: None

PATIENT
  Age: 10 Year
  Sex: Male
  Weight: 42 kg

DRUGS (2)
  1. TAMIFLU [Suspect]
     Indication: H1N1 INFLUENZA
     Dosage: X1 PO
     Route: 048
     Dates: start: 20090824, end: 20090824
  2. TAMIFLU [Suspect]
     Indication: INFLUENZA
     Dosage: X1 PO
     Route: 048
     Dates: start: 20090824, end: 20090824

REACTIONS (5)
  - BLISTER [None]
  - HYPOAESTHESIA ORAL [None]
  - PARAESTHESIA ORAL [None]
  - PERIORBITAL OEDEMA [None]
  - SWOLLEN TONGUE [None]
